FAERS Safety Report 8065907-5 (Version None)
Quarter: 2012Q1

REPORT INFORMATION
  Report Type: 
  Country: None (occurrence: None)
  Receive Date: 20120124
  Receipt Date: 20120119
  Transmission Date: 20120608
  Serious: Yes (Death)
  Sender: FDA-Public Use
  Company Number: US-CELGENEUS-163-21880-12011960

PATIENT
  Sex: Male

DRUGS (14)
  1. REVLIMID [Suspect]
     Indication: LYMPHOMA
     Dosage: 10 MILLIGRAM
     Route: 048
     Dates: start: 20111219
  2. FLUCONAZOLE [Concomitant]
     Route: 065
  3. LORAZEPAM [Concomitant]
     Route: 065
  4. CO Q10 [Concomitant]
     Route: 065
  5. MAGNESIUM SULFATE [Concomitant]
     Route: 065
  6. MORPHINE [Concomitant]
     Route: 065
  7. TRAMADOL HCL [Concomitant]
     Route: 065
  8. RITUXAN [Concomitant]
     Route: 065
  9. CLONIDINE [Concomitant]
     Route: 065
  10. PHENERGAN [Concomitant]
     Route: 065
  11. VALTREX [Concomitant]
     Route: 065
  12. CYTOXAN [Concomitant]
     Route: 065
  13. FLAX OIL [Concomitant]
     Route: 065
  14. FLORA Q [Concomitant]
     Route: 065

REACTIONS (1)
  - DEATH [None]
